FAERS Safety Report 8322977-4 (Version None)
Quarter: 2012Q2

REPORT INFORMATION
  Report Type: 
  Country: None (occurrence: None)
  Receive Date: 20120430
  Receipt Date: 20120425
  Transmission Date: 20120825
  Serious: Yes (Other)
  Sender: FDA-Public Use
  Company Number: CH-PFIZER INC-2012103461

PATIENT
  Age: 51 Year
  Sex: Male

DRUGS (1)
  1. TORISEL [Suspect]
     Dosage: 25 MG, WEEKLY
     Dates: start: 20111201, end: 20120201

REACTIONS (1)
  - GASTROINTESTINAL HAEMORRHAGE [None]
